FAERS Safety Report 10606482 (Version 1)
Quarter: 2014Q4

REPORT INFORMATION
  Report Type: Report from Study
  Country: US (occurrence: US)
  Receive Date: 20141125
  Receipt Date: 20141125
  Transmission Date: 20150529
  Serious: No
  Sender: FDA-Public Use
  Company Number: US-AMGEN-USASL2014091011

PATIENT
  Age: 6 Year
  Sex: Female

DRUGS (2)
  1. ENBREL [Suspect]
     Active Substance: ETANERCEPT
     Indication: JUVENILE IDIOPATHIC ARTHRITIS
     Dosage: 0.7ML OF A 25G DOSE WEEKLY
     Route: 065
     Dates: start: 20141111
  2. METHOTREXATE [Concomitant]
     Active Substance: METHOTREXATE
     Dosage: 0.8ML OF AN UNSPECIFIED DOSE WEEKLY
     Route: 030

REACTIONS (4)
  - Headache [Recovered/Resolved]
  - Abdominal pain upper [Recovered/Resolved]
  - Epistaxis [Recovered/Resolved]
  - Aphthous stomatitis [Not Recovered/Not Resolved]

NARRATIVE: CASE EVENT DATE: 20141116
